FAERS Safety Report 17122303 (Version 1)
Quarter: 2019Q4

REPORT INFORMATION
  Report Type: Spontaneous
  Country: GB (occurrence: GB)
  Receive Date: 20191206
  Receipt Date: 20191206
  Transmission Date: 20200122
  Serious: Yes (Other)
  Sender: FDA-Public Use
  Company Number: GB-PFIZER INC-2019521530

PATIENT
  Age: 20 Year
  Sex: Female

DRUGS (3)
  1. CIPROFLOXACIN HCL [Suspect]
     Active Substance: CIPROFLOXACIN HYDROCHLORIDE
     Dosage: 1000 MG, 1X/DAY
     Route: 048
     Dates: start: 20191104
  2. IBUPROFEN. [Concomitant]
     Active Substance: IBUPROFEN
     Dosage: UNK
  3. HYOSCINE BUTYLBROMIDE [Concomitant]
     Active Substance: BUTYLSCOPOLAMINE BROMIDE
     Dosage: UNK

REACTIONS (5)
  - Pharyngeal swelling [Unknown]
  - Angioedema [Unknown]
  - Product use issue [Unknown]
  - Lip swelling [Unknown]
  - Off label use [Unknown]
